FAERS Safety Report 17286983 (Version 1)
Quarter: 2020Q1

REPORT INFORMATION
  Report Type: Spontaneous
  Country: GB (occurrence: GB)
  Receive Date: 20200120
  Receipt Date: 20200120
  Transmission Date: 20200409
  Serious: Yes (Other)
  Sender: FDA-Public Use
  Company Number: GB-TEVA-2020-GB-1169533

PATIENT
  Age: 37 Year
  Sex: Female
  Weight: 56 kg

DRUGS (12)
  1. PHYSEPTONE [Concomitant]
     Dosage: SUPERVISED. (50ML)
     Dates: start: 20190717
  2. FERROUS SULFATE. [Concomitant]
     Active Substance: FERROUS SULFATE
     Dosage: 3 DOSAGE FORM PER DAY
     Dates: start: 20190906
  3. TRAZODONE [Suspect]
     Active Substance: TRAZODONE HYDROCHLORIDE
     Indication: DEPRESSED MOOD
     Dosage: 150 MILLIGRAM DAILY; AT NIGHT.
     Dates: start: 20191121
  4. AMITRIPTYLINE HYDROCHLORIDE. [Concomitant]
     Active Substance: AMITRIPTYLINE HYDROCHLORIDE
     Dosage: 1 DOSAGE FORMS DAILY; EACH NIGHT.
     Dates: start: 20190906
  5. LACTULOSE. [Concomitant]
     Active Substance: LACTULOSE
     Indication: CONSTIPATION
     Dosage: TAKE 10-15ML TWICE A DAY.
     Dates: start: 20191212
  6. IBUPROFEN. [Concomitant]
     Active Substance: IBUPROFEN
     Dosage: AFTER FOOD. 3 DOSAGE FORM PER DAY
     Dates: start: 20191101, end: 20191129
  7. BACLOFEN. [Concomitant]
     Active Substance: BACLOFEN
     Dosage: 3 DOSAGE FORM PER DAY
     Dates: start: 20191024, end: 20191107
  8. FOLIC ACID. [Concomitant]
     Active Substance: FOLIC ACID
     Dosage: 1 DOSAGE FORM PER DAY
     Dates: start: 20190906
  9. PREGABALIN. [Concomitant]
     Active Substance: PREGABALIN
     Dosage: 2 DOSAGE FORM PER DAY
     Dates: start: 20190906
  10. LANSOPRAZOLE. [Concomitant]
     Active Substance: LANSOPRAZOLE
     Indication: GASTROOESOPHAGEAL REFLUX DISEASE
     Dosage: 2 DOSAGE FORM PER DAY
     Dates: start: 20191101, end: 20191129
  11. CEFALEXIN [Concomitant]
     Active Substance: CEPHALEXIN
     Dosage: 3 DOSAGE FORM PER DAY
     Dates: start: 20191024, end: 20191031
  12. RIVAROXABAN [Concomitant]
     Active Substance: RIVAROXABAN
     Indication: EMBOLISM VENOUS
     Dosage: DO NOT TAKE WITH WARFARIN.
     Dates: start: 20190906

REACTIONS (1)
  - Abdominal pain [Recovered/Resolved]
